FAERS Safety Report 4949925-9 (Version None)
Quarter: 2006Q1

REPORT INFORMATION
  Report Type: 
  Country: None (occurrence: None)
  Receive Date: 20060315
  Receipt Date: 20060302
  Transmission Date: 20060701
  Serious: Yes (Other)
  Sender: FDA-Public Use
  Company Number: 222783

PATIENT
  Age: 52 Year
  Sex: Female

DRUGS (5)
  1. HERCEPTIN [Suspect]
     Indication: BREAST CANCER METASTATIC
     Dosage: 8 MG/KG, Q3W
     Dates: start: 20060301
  2. ACETAMINOPHEN [Concomitant]
  3. MECLIZINE HCL [Concomitant]
  4. OXYCODONE (OXYCODONE) [Concomitant]
  5. CELEXA [Concomitant]

REACTIONS (5)
  - AGITATION [None]
  - AKATHISIA [None]
  - BONE PAIN [None]
  - INFUSION RELATED REACTION [None]
  - THERAPY NON-RESPONDER [None]
